FAERS Safety Report 9173445 (Version 1)
Quarter: 2013Q1

REPORT INFORMATION
  Report Type: Spontaneous
  Country: FR (occurrence: None)
  Receive Date: 20130315
  Receipt Date: 20130315
  Transmission Date: 20140127
  Serious: Yes (Hospitalization)
  Sender: FDA-Public Use
  Company Number: 1631031

PATIENT
  Age: 62 Year
  Sex: Male

DRUGS (2)
  1. CARBOPLATIN [Suspect]
     Indication: PRODUCT USED FOR UNKNOWN INDICATION
     Route: 041
     Dates: end: 20121119
  2. GEMCITABINE [Suspect]
     Route: 041
     Dates: end: 20121119

REACTIONS (3)
  - Pancytopenia [None]
  - Haematoma [None]
  - Haematotoxicity [None]
